FAERS Safety Report 7292326-1 (Version None)
Quarter: 2011Q1

REPORT INFORMATION
  Report Type: 
  Country: None (occurrence: None)
  Receive Date: 20110215
  Receipt Date: 20110201
  Transmission Date: 20110831
  Serious: Yes (Death)
  Sender: FDA-Public Use
  Company Number: US-CELGENEUS-163-21880-11020360

PATIENT
  Sex: Male

DRUGS (4)
  1. CARVEDILOL [Concomitant]
     Route: 065
  2. ARICEPT [Concomitant]
     Route: 065
  3. REVLIMID [Suspect]
     Indication: MULTIPLE MYELOMA
     Route: 048
     Dates: start: 20101014
  4. SIMVASTATIN [Concomitant]
     Route: 065

REACTIONS (1)
  - DEATH [None]
